FAERS Safety Report 25430627 (Version 2)
Quarter: 2025Q2

REPORT INFORMATION
  Report Type: Spontaneous
  Country: CH (occurrence: CH)
  Receive Date: 20250612
  Receipt Date: 20250620
  Transmission Date: 20250716
  Serious: Yes (Hospitalization, Other)
  Sender: PFIZER
  Company Number: CH-MLMSERVICE-20250530-PI526620-00285-3

PATIENT
  Age: 25 Year
  Sex: Male
  Weight: 53 kg

DRUGS (9)
  1. LORAZEPAM [Suspect]
     Active Substance: LORAZEPAM
  2. RISPERIDONE [Suspect]
     Active Substance: RISPERIDONE
     Indication: Antipsychotic therapy
  3. OLANZAPINE [Suspect]
     Active Substance: OLANZAPINE
  4. OLANZAPINE [Suspect]
     Active Substance: OLANZAPINE
  5. VALPROATE SODIUM [Suspect]
     Active Substance: VALPROATE SODIUM
  6. CLOBAZAM [Suspect]
     Active Substance: CLOBAZAM
  7. LEVOMEPROMAZINE [Suspect]
     Active Substance: LEVOMEPROMAZINE
  8. ESOMEPRAZOLE [Suspect]
     Active Substance: ESOMEPRAZOLE
  9. CLONIDINE [Concomitant]
     Active Substance: CLONIDINE

REACTIONS (6)
  - Self-destructive behaviour [Unknown]
  - Aggression [Unknown]
  - Enuresis [Recovered/Resolved]
  - Urinary retention [Recovered/Resolved]
  - Blindness [Unknown]
  - Urinary incontinence [Recovered/Resolved]
